FAERS Safety Report 8757559 (Version 1)
Quarter: 2012Q4

REPORT INFORMATION
  Report Type: 
  Country: JP (occurrence: JP)
  Receive Date: 20120828
  Receipt Date: 20120828
  Transmission Date: 20130627
  Serious: Yes (Other)
  Sender: FDA-Public Use
  Company Number: JP-PFIZER INC-2012208577

PATIENT
  Age: 67 Year
  Sex: Female

DRUGS (6)
  1. LIPITOR [Suspect]
     Indication: HYPERCHOLESTEROLAEMIA
     Dosage: 10 mg, daily
     Route: 048
     Dates: start: 2000, end: 201110
  2. LIPITOR [Suspect]
     Dosage: 5 mg, 1x/day
     Route: 048
     Dates: start: 201110
  3. ATP ^LECIVA^ [Concomitant]
     Dosage: UNK
  4. METHYCOBAL [Concomitant]
     Dosage: UNK
  5. CALFINA [Concomitant]
     Dosage: UNK
     Route: 048
  6. ALOSENN [Concomitant]
     Dosage: UNK

REACTIONS (3)
  - Cataract [Unknown]
  - Blood creatinine increased [Unknown]
  - Vitreous floaters [Unknown]
